FAERS Safety Report 23916322 (Version 3)
Quarter: 2024Q4

REPORT INFORMATION
  Report Type: Spontaneous
  Country: NL (occurrence: NL)
  Receive Date: 20240529
  Receipt Date: 20241209
  Transmission Date: 20250114
  Serious: Yes (Death, Hospitalization, Other)
  Sender: MYLAN
  Company Number: NL-ROCHE-3563129

PATIENT
  Age: 55 Year
  Sex: Male

DRUGS (18)
  1. CAPECITABINE [Suspect]
     Active Substance: CAPECITABINE
     Indication: Gastric cancer
     Dosage: 500 MG/SQ. METER, BID (DOSE OF CAPECITABINE WAS REDUCED TO 50% (1000 MG/M2 CYCLICAL, ADMINISTERED UN
     Route: 065
  2. CAPECITABINE [Suspect]
     Active Substance: CAPECITABINE
     Indication: HER2 positive gastric cancer
     Dosage: 500 MILLIGRAM/SQ. METER, QD (DOSE OF CAPECITABINE 50% (500MG/M2 TWICE DAILY)
     Route: 065
  3. CAPECITABINE [Suspect]
     Active Substance: CAPECITABINE
     Indication: Metastases to peritoneum
  4. CAPECITABINE [Suspect]
     Active Substance: CAPECITABINE
     Indication: Metastasis
  5. CAPECITABINE [Suspect]
     Active Substance: CAPECITABINE
     Indication: Metastases to lymph nodes
  6. CAPECITABINE [Suspect]
     Active Substance: CAPECITABINE
     Indication: Testis cancer
  7. OXALIPLATIN [Suspect]
     Active Substance: OXALIPLATIN
     Indication: Gastric cancer
     Dosage: UNK (ADMINISTERED UNDER CAPOX REGIMEN)
     Route: 065
  8. OXALIPLATIN [Suspect]
     Active Substance: OXALIPLATIN
     Indication: Metastases to peritoneum
  9. OXALIPLATIN [Suspect]
     Active Substance: OXALIPLATIN
     Indication: Metastases to lymph nodes
  10. OXALIPLATIN [Suspect]
     Active Substance: OXALIPLATIN
     Indication: Testis cancer
  11. OXALIPLATIN [Suspect]
     Active Substance: OXALIPLATIN
     Indication: HER2 positive gastric cancer
  12. OXALIPLATIN [Suspect]
     Active Substance: OXALIPLATIN
     Indication: Metastasis
  13. TRASTUZUMAB [Suspect]
     Active Substance: TRASTUZUMAB
     Indication: Gastric cancer
     Dosage: UNK
     Route: 065
  14. TRASTUZUMAB [Suspect]
     Active Substance: TRASTUZUMAB
     Indication: HER2 positive gastric cancer
     Dosage: UNK
     Route: 065
  15. TRASTUZUMAB [Suspect]
     Active Substance: TRASTUZUMAB
     Indication: Metastases to peritoneum
  16. TRASTUZUMAB [Suspect]
     Active Substance: TRASTUZUMAB
     Indication: Metastasis
  17. TRASTUZUMAB [Suspect]
     Active Substance: TRASTUZUMAB
     Indication: Metastases to lymph nodes
  18. TRASTUZUMAB [Suspect]
     Active Substance: TRASTUZUMAB
     Indication: Testis cancer

REACTIONS (10)
  - Leukoencephalopathy [Fatal]
  - Toxicity to various agents [Fatal]
  - Neutropenic colitis [Recovered/Resolved]
  - Pancytopenia [Recovered/Resolved]
  - Thrombosis [Unknown]
  - Stomatitis [Recovered/Resolved]
  - Diarrhoea [Unknown]
  - Mucosal inflammation [Recovered/Resolved]
  - Cognitive disorder [Recovering/Resolving]
  - Altered state of consciousness [Recovering/Resolving]
